FAERS Safety Report 16137674 (Version 1)
Quarter: 2019Q2

REPORT INFORMATION
  Report Type: Spontaneous
  Country: CA (occurrence: CA)
  Receive Date: 20190401
  Receipt Date: 20190401
  Transmission Date: 20190711
  Serious: Yes (Other)
  Sender: FDA-Public Use
  Company Number: CA-GLAXOSMITHKLINE-CA2019GSK055589

PATIENT

DRUGS (1)
  1. THRIVE GUM UNKNOWN [Suspect]
     Active Substance: NICOTINE
     Indication: EX-TOBACCO USER
     Dosage: UNK

REACTIONS (3)
  - Malaise [Unknown]
  - Drug dependence [Unknown]
  - Blood glucose increased [Unknown]
